FAERS Safety Report 4697641-3 (Version None)
Quarter: 2005Q2

REPORT INFORMATION
  Report Type: 
  Country: None (occurrence: None)
  Receive Date: 20050620
  Receipt Date: 20040921
  Transmission Date: 20051028
  Serious: Yes (Hospitalization)
  Sender: FDA-Public Use
  Company Number: 200417178US

PATIENT

DRUGS (1)
  1. LANTUS [Suspect]

REACTIONS (1)
  - HYPOGLYCAEMIC SEIZURE [None]
